FAERS Safety Report 9789825 (Version 1)
Quarter: 2013Q4

REPORT INFORMATION
  Report Type: Spontaneous
  Country: FR (occurrence: None)
  Receive Date: 20131227
  Receipt Date: 20131227
  Transmission Date: 20140711
  Serious: Yes (Hospitalization)
  Sender: FDA-Public Use
  Company Number: 1951211

PATIENT
  Age: 44 Year
  Sex: Female

DRUGS (8)
  1. CARBOPLATIN [Suspect]
     Indication: BREAST CANCER
     Dosage: INTRAVENOUS (NOT OTHERWISE SPECIFIED)
     Route: 042
     Dates: start: 20111230, end: 20111230
  2. TRASTUZUMAB [Suspect]
     Indication: BREAST CANCER
     Dosage: INTRAVENOUS (NOT OTHERWISE SPECIFIED)
     Route: 042
     Dates: start: 20111230, end: 20111230
  3. PACLITAXEL [Suspect]
     Indication: BREAST CANCER
     Dosage: INTRAVENOUS (NOT OTHERWISE SPECIFIED)
     Route: 042
     Dates: start: 20111230, end: 20111230
  4. DEXCHLORPHENIRAMINE MALEATE) [Concomitant]
  5. RANITIDINE [Concomitant]
  6. METHYLPREDNISOLONE [Concomitant]
  7. ONDANSETRON [Concomitant]
  8. APREPITANT [Concomitant]

REACTIONS (2)
  - Chest pain [None]
  - Oxygen saturation decreased [None]
